FAERS Safety Report 14200259 (Version 4)
Quarter: 2018Q4

REPORT INFORMATION
  Report Type: Spontaneous
  Country: DE (occurrence: DE)
  Receive Date: 20171117
  Receipt Date: 20181010
  Transmission Date: 20190204
  Serious: Yes (Death, Hospitalization, Other)
  Sender: FDA-Public Use
  Company Number: DE-PFIZER INC-2017491897

PATIENT
  Age: 76 Year
  Sex: Male

DRUGS (7)
  1. PANTOPRAZOLE [Concomitant]
     Active Substance: PANTOPRAZOLE
     Dosage: 20 MG, DAILY (INTAKE SINCE LONGER TIME)
     Route: 048
     Dates: start: 20170416
  2. TORASEMIDE [Concomitant]
     Active Substance: TORSEMIDE
     Dosage: 10 MG, DAILY (INTAKE SINCE LONGER TIME)
     Route: 048
     Dates: start: 20170416
  3. VENLAFAXINE HCL [Suspect]
     Active Substance: VENLAFAXINE HYDROCHLORIDE
     Dosage: 225 MG, DAILY
     Route: 048
     Dates: start: 20170203, end: 20170416
  4. ASPIRIN. [Suspect]
     Active Substance: ASPIRIN
     Dosage: 100 MG, DAILY (INTAKE SINCE LONGER TIME)
     Route: 048
     Dates: start: 20170416
  5. MULTIBIONTA [Concomitant]
     Active Substance: MINERALS\PROBIOTICS NOS\VITAMINS
     Dosage: 30 GTT, DAILY (INTAKE SINCE LONGER TIME)
     Dates: start: 20170416
  6. QUETIAPINE. [Concomitant]
     Active Substance: QUETIAPINE
     Dosage: 300 MG, DAILY
     Route: 048
     Dates: start: 20170309, end: 20170416
  7. L-THYROXIN [Concomitant]
     Active Substance: LEVOTHYROXINE SODIUM
     Dosage: 75 UG, DAILY (INTAKE SINCE LONGER TIME)
     Route: 048
     Dates: start: 20170416

REACTIONS (3)
  - Intraventricular haemorrhage [Fatal]
  - Hydrocephalus [Fatal]
  - Seizure [Fatal]

NARRATIVE: CASE EVENT DATE: 20170416
